FAERS Safety Report 20165237 (Version 1)
Quarter: 2021Q4

REPORT INFORMATION
  Report Type: Spontaneous
  Country: US (occurrence: US)
  Receive Date: 20211209
  Receipt Date: 20211209
  Transmission Date: 20220304
  Serious: Yes (Hospitalization)
  Sender: FDA-Public Use
  Company Number: US-ELI_LILLY_AND_COMPANY-US202112000999

PATIENT
  Age: 37 Year
  Sex: Male

DRUGS (4)
  1. ETESEVIMAB [Suspect]
     Active Substance: ETESEVIMAB
     Indication: COVID-19
     Dosage: UNK, SINGLE
     Route: 065
     Dates: start: 20211125, end: 20211125
  2. ETESEVIMAB [Suspect]
     Active Substance: ETESEVIMAB
     Indication: Acute respiratory failure
  3. BAMLANIVIMAB [Suspect]
     Active Substance: BAMLANIVIMAB
     Indication: COVID-19
     Dosage: UNK, SINGLE
     Route: 065
     Dates: start: 20211125, end: 20211125
  4. BAMLANIVIMAB [Suspect]
     Active Substance: BAMLANIVIMAB
     Indication: Acute respiratory failure

REACTIONS (1)
  - Oxygen consumption increased [Unknown]
